FAERS Safety Report 9868980 (Version 12)
Quarter: 2015Q2

REPORT INFORMATION
  Report Type: Spontaneous
  Country: CA (occurrence: CA)
  Receive Date: 20140205
  Receipt Date: 20150615
  Transmission Date: 20150821
  Serious: Yes (Hospitalization, Other)
  Sender: FDA-Public Use
  Company Number: CA-ROCHE-1344118

PATIENT
  Age: 61 Year
  Sex: Male

DRUGS (7)
  1. XOLAIR [Suspect]
     Active Substance: OMALIZUMAB
     Route: 058
     Dates: start: 20141022
  2. XOLAIR [Suspect]
     Active Substance: OMALIZUMAB
     Route: 058
     Dates: start: 20140424
  3. XOLAIR [Suspect]
     Active Substance: OMALIZUMAB
     Route: 058
     Dates: start: 20150520
  4. XOLAIR [Suspect]
     Active Substance: OMALIZUMAB
     Route: 058
     Dates: start: 20150306
  5. XOLAIR [Suspect]
     Active Substance: OMALIZUMAB
     Route: 058
     Dates: start: 201307
  6. XOLAIR [Suspect]
     Active Substance: OMALIZUMAB
     Route: 058
     Dates: start: 20140130
  7. XOLAIR [Suspect]
     Active Substance: OMALIZUMAB
     Indication: ASTHMA
     Route: 058
     Dates: start: 20130627

REACTIONS (21)
  - Pain in extremity [Recovering/Resolving]
  - Road traffic accident [Unknown]
  - Loss of consciousness [Unknown]
  - Dizziness [Unknown]
  - Arthralgia [Recovering/Resolving]
  - Blood pressure systolic increased [Unknown]
  - Sciatica [Not Recovered/Not Resolved]
  - Pain [Unknown]
  - Back pain [Not Recovered/Not Resolved]
  - Fall [Unknown]
  - Injection site pruritus [Recovered/Resolved]
  - Oedema peripheral [Unknown]
  - Pneumonia [Unknown]
  - Headache [Unknown]
  - Injection site erythema [Recovered/Resolved]
  - Nephrolithiasis [Unknown]
  - Cough [Not Recovered/Not Resolved]
  - Haematoma [Unknown]
  - Movement disorder [Unknown]
  - Dyspnoea [Unknown]
  - Neck pain [Unknown]

NARRATIVE: CASE EVENT DATE: 20130627
